FAERS Safety Report 7937274-6 (Version None)
Quarter: 2011Q4

REPORT INFORMATION
  Report Type: 
  Country: None (occurrence: None)
  Receive Date: 20111123
  Receipt Date: 20111118
  Transmission Date: 20120403
  Serious: Yes (Hospitalization)
  Sender: FDA-Public Use
  Company Number: US-US-EMD SERONO, INC.-7097208

PATIENT
  Sex: Male
  Weight: 91 kg

DRUGS (5)
  1. REBIF [Suspect]
     Indication: MULTIPLE SCLEROSIS
     Route: 058
     Dates: start: 20050618
  2. KEPPRA [Concomitant]
     Indication: CONVULSION
  3. LIPITOR [Concomitant]
     Indication: BLOOD CHOLESTEROL INCREASED
  4. DILANTIN [Concomitant]
     Indication: CONVULSION
  5. NEURONTIN [Concomitant]
     Indication: PAIN

REACTIONS (6)
  - CORONARY ARTERY OCCLUSION [None]
  - HAEMORRHAGE [None]
  - LOSS OF CONSCIOUSNESS [None]
  - ANTICONVULSANT DRUG LEVEL ABNORMAL [None]
  - HEAD INJURY [None]
  - FALL [None]
